FAERS Safety Report 10251989 (Version 1)
Quarter: 2014Q2

REPORT INFORMATION
  Report Type: Spontaneous
  Country: CN (occurrence: CN)
  Receive Date: 20140623
  Receipt Date: 20140623
  Transmission Date: 20141212
  Serious: Yes (Hospitalization)
  Sender: FDA-Public Use
  Company Number: CN-ELI_LILLY_AND_COMPANY-CN201406006898

PATIENT
  Age: 38 Year
  Sex: Female

DRUGS (2)
  1. PROZAC [Suspect]
     Indication: DEPRESSION
     Dosage: 20 MG, QD
     Route: 048
     Dates: start: 20130822, end: 20130924
  2. OLANZAPINE [Suspect]
     Indication: DEPRESSION
     Dosage: 2.5 MG, QD
     Route: 048
     Dates: start: 20130822, end: 20130924

REACTIONS (9)
  - Dyssomnia [Recovering/Resolving]
  - Depressed mood [Recovering/Resolving]
  - Decreased activity [Recovering/Resolving]
  - Fatigue [Recovering/Resolving]
  - Amnesia [Recovering/Resolving]
  - Aspartate aminotransferase increased [Recovered/Resolved]
  - Alanine aminotransferase increased [Recovered/Resolved]
  - Drug withdrawal syndrome [Recovering/Resolving]
  - Off label use [Unknown]
